FAERS Safety Report 15955030 (Version 2)
Quarter: 2019Q2

REPORT INFORMATION
  Report Type: Spontaneous
  Country: US (occurrence: US)
  Receive Date: 20190213
  Receipt Date: 20190503
  Transmission Date: 20190711
  Serious: No
  Sender: FDA-Public Use
  Company Number: US-PFIZER INC-2019056601

PATIENT
  Age: 54 Year
  Sex: Female

DRUGS (1)
  1. METHOTREXATE SODIUM. [Suspect]
     Active Substance: METHOTREXATE SODIUM
     Dosage: 0.5 ML, WEEKLY (12.5 MG SUBCUTANEOUS WEEKLY; 0.5ML)
     Route: 058

REACTIONS (4)
  - Product use issue [Unknown]
  - Arthritis [Not Recovered/Not Resolved]
  - Fibromyalgia [Unknown]
  - Sleep disorder [Unknown]

NARRATIVE: CASE EVENT DATE: 201812
